FAERS Safety Report 5126877-2 (Version None)
Quarter: 2006Q4

REPORT INFORMATION
  Report Type: 
  Country: None (occurrence: None)
  Receive Date: 20061011
  Receipt Date: 20061011
  Transmission Date: 20070319
  Serious: Yes (Hospitalization)
  Sender: FDA-Public Use
  Company Number: None

PATIENT
  Age: 78 Year
  Sex: Male
  Weight: 63 kg

DRUGS (1)
  1. HYDROMORPHONE HCL [Suspect]
     Indication: NEURALGIA
     Dosage: 4-10MG   Q3H   PO
     Route: 048

REACTIONS (1)
  - DEMENTIA [None]
